FAERS Safety Report 13405425 (Version 2)
Quarter: 2017Q2

REPORT INFORMATION
  Report Type: Spontaneous
  Country: US (occurrence: US)
  Receive Date: 20170405
  Receipt Date: 20170519
  Transmission Date: 20170830
  Serious: No
  Sender: FDA-Public Use
  Company Number: US-PFIZER INC-2017138400

PATIENT
  Sex: Female

DRUGS (1)
  1. XELJANZ XR [Suspect]
     Active Substance: TOFACITINIB CITRATE
     Dosage: 11 MG, UNK

REACTIONS (12)
  - Crepitations [Unknown]
  - Hypoaesthesia [Unknown]
  - Paraesthesia [Unknown]
  - Movement disorder [Unknown]
  - Fatigue [Unknown]
  - Musculoskeletal stiffness [Unknown]
  - Back pain [Unknown]
  - Peripheral swelling [Unknown]
  - Swelling [Unknown]
  - Neck pain [Unknown]
  - Tenderness [Unknown]
  - Arthralgia [Unknown]
